FAERS Safety Report 8033010-6 (Version None)
Quarter: 2012Q1

REPORT INFORMATION
  Report Type: 
  Country: None (occurrence: None)
  Receive Date: 20120110
  Receipt Date: 20120105
  Transmission Date: 20120608
  Serious: Yes (Hospitalization)
  Sender: FDA-Public Use
  Company Number: US-JNJFOC-20120102035

PATIENT
  Age: 38 Year
  Sex: Male

DRUGS (1)
  1. INVEGA SUSTENNA [Suspect]
     Indication: PRODUCT USED FOR UNKNOWN INDICATION
     Route: 030
     Dates: start: 20110926

REACTIONS (5)
  - HOSPITALISATION [None]
  - DRUG DOSE OMISSION [None]
  - MEDICAL DEVICE COMPLICATION [None]
  - DEVICE LEAKAGE [None]
  - DEVICE MALFUNCTION [None]
